FAERS Safety Report 7485883-3 (Version None)
Quarter: 2011Q2

REPORT INFORMATION
  Report Type: 
  Country: None (occurrence: None)
  Receive Date: 20110516
  Receipt Date: 20110516
  Transmission Date: 20111010
  Serious: Yes (Hospitalization)
  Sender: FDA-Public Use
  Company Number: None

PATIENT
  Age: 64 Year
  Sex: Male
  Weight: 97.1 kg

DRUGS (1)
  1. HYDROXYCHLOROQUINE SULFATE [Suspect]
     Indication: ARTHRITIS
     Dosage: 400 MG EVERY DAY PO
     Route: 048
     Dates: start: 20110124, end: 20110130

REACTIONS (7)
  - RHEUMATOID ARTHRITIS [None]
  - OEDEMA PERIPHERAL [None]
  - PLEURAL EFFUSION [None]
  - EMPYEMA [None]
  - PARANEOPLASTIC SYNDROME [None]
  - DYSPNOEA EXERTIONAL [None]
  - ARTHRALGIA [None]
